FAERS Safety Report 8482840-5 (Version None)
Quarter: 2012Q3

REPORT INFORMATION
  Report Type: 
  Country: None (occurrence: None)
  Receive Date: 20120702
  Receipt Date: 20120620
  Transmission Date: 20120928
  Serious: Yes (Hospitalization, Other)
  Sender: FDA-Public Use
  Company Number: FR-BRISTOL-MYERS SQUIBB COMPANY-16705923

PATIENT
  Age: 85 Year
  Sex: Female

DRUGS (3)
  1. CAPTOPRIL [Suspect]
     Dosage: SCORED TABLET
     Route: 048
     Dates: end: 20111127
  2. METFORMIN HCL [Suspect]
     Route: 048
     Dates: end: 20111127
  3. CAPTOPRIL [Suspect]
     Dosage: SCORED TABLET
     Route: 048
     Dates: end: 20111127

REACTIONS (5)
  - DEPRESSION [None]
  - INTENTIONAL OVERDOSE [None]
  - RENAL FAILURE ACUTE [None]
  - METABOLIC ACIDOSIS [None]
  - MEMORY IMPAIRMENT [None]
